FAERS Safety Report 18420685 (Version 2)
Quarter: 2020Q4

REPORT INFORMATION
  Report Type: Spontaneous
  Country: NL (occurrence: FR)
  Receive Date: 20201023
  Receipt Date: 20201105
  Transmission Date: 20210114
  Serious: Yes (Life-Threatening)
  Sender: FDA-Public Use
  Company Number: FR-FRESENIUS KABI-FK202010827

PATIENT
  Age: 60 Year
  Sex: Female
  Weight: 47 kg

DRUGS (22)
  1. GLUCOSE (MANUFACTURER UNKNOWN) [Suspect]
     Active Substance: DEXTROSE
     Indication: PRODUCT USED FOR UNKNOWN INDICATION
     Dosage: 1 BAG UNDER THE BEDF01LK FORMULA.
     Route: 065
     Dates: start: 20200921, end: 20200927
  2. GLUCOSE (MANUFACTURER UNKNOWN) [Suspect]
     Active Substance: DEXTROSE
     Dosage: 7 BAGS UNDER THE BEDF01L FORMULA
     Route: 065
     Dates: start: 20200921, end: 20200927
  3. AMINO ACIDS NOS [Suspect]
     Active Substance: AMINO ACIDS, SOURCE UNSPECIFIED
     Dosage: 7 BAGS UNDER THE BEDF01L FORMULA
     Route: 065
     Dates: start: 20200921, end: 20200927
  4. GLUCOSE 1-PHOSPHATE DISODIUM [Suspect]
     Active Substance: .ALPHA.-GLUCOSE-1-PHOSPHATE
     Dosage: 7 BAGS UNDER THE BEDF01L FORMULA
     Route: 065
     Dates: start: 20200921, end: 20200927
  5. POTASSIUM CHLORIDE (MANUFACTURER UNKNOWN) [Suspect]
     Active Substance: POTASSIUM CHLORIDE
     Indication: PRODUCT USED FOR UNKNOWN INDICATION
     Dosage: 7 BAGS UNDER THE BEDF01L FORMULA
     Route: 065
     Dates: start: 20200921, end: 20200927
  6. SODIUM CHLORIDE (MANUFACTURER UNKNOWN) [Suspect]
     Active Substance: SODIUM CHLORIDE
     Indication: PRODUCT USED FOR UNKNOWN INDICATION
     Dosage: DOSE:111 (NOT SPECIFIED)?1 BAG UNDER THE BEDF01LK FORMULA.
     Route: 065
     Dates: start: 20200921, end: 20200927
  7. SODIUM CHLORIDE (MANUFACTURER UNKNOWN) [Suspect]
     Active Substance: SODIUM CHLORIDE
     Dosage: DOSE:111 (NOT SPECIFIED)?7 BAGS UNDER THE BEDF01L FORMULA
     Route: 065
     Dates: start: 20200921, end: 20200927
  8. SODIUM LACTATE. [Suspect]
     Active Substance: SODIUM LACTATE
     Indication: PRODUCT USED FOR UNKNOWN INDICATION
     Dosage: 7 BAGS UNDER THE BEDF01L FORMULA
     Route: 065
     Dates: start: 20200921, end: 20200927
  9. SMOFLIPID [Suspect]
     Active Substance: FISH OIL\MEDIUM-CHAIN TRIGLYCERIDES\OLIVE OIL\SOYBEAN OIL
     Dosage: DOSE 152 (NOT SPECIFIED)?1 BAG UNDER THE BEDF01LK FORMULA.
     Route: 065
     Dates: start: 20200921, end: 20200927
  10. ASCORBIC ACID/PYRIDOXINE HYDROCHLORIDE/BIOTIN/FOLIC ACID/COLECALCIFEROL/CYANOCOBALAMIN/RETINOL PALMI [Suspect]
     Active Substance: VITAMINS
     Indication: PRODUCT USED FOR UNKNOWN INDICATION
     Dosage: 7 BAGS UNDER THE BEDF01L FORMULA
     Route: 065
     Dates: start: 20200921, end: 20200927
  11. PHYTOMENADIONE [Suspect]
     Active Substance: PHYTONADIONE
     Dosage: 1 BAG UNDER THE BEDF01LK FORMULA.
     Route: 065
     Dates: start: 20200921, end: 20200927
  12. SMOFLIPID [Suspect]
     Active Substance: FISH OIL\MEDIUM-CHAIN TRIGLYCERIDES\OLIVE OIL\SOYBEAN OIL
     Indication: PRODUCT USED FOR UNKNOWN INDICATION
     Dosage: DOSE: 152 (NOT SPECIFIED)?7 BAGS UNDER THE BEDF01L FORMULA
     Route: 065
     Dates: start: 20200921, end: 20200927
  13. POTASSIUM CHLORIDE (MANUFACTURER UNKNOWN) [Suspect]
     Active Substance: POTASSIUM CHLORIDE
     Dosage: 1 BAG UNDER THE BEDF01LK FORMULA.
     Route: 065
     Dates: start: 20200921, end: 20200927
  14. ASCORBIC ACID/PYRIDOXINE HYDROCHLORIDE/BIOTIN/FOLIC ACID/COLECALCIFEROL/CYANOCOBALAMIN/RETINOL PALMI [Suspect]
     Active Substance: VITAMINS
     Dosage: 1 BAG UNDER THE BEDF01LK FORMULA
     Route: 065
     Dates: start: 20200921, end: 20200927
  15. CALCIUM GLUCONATE. [Suspect]
     Active Substance: CALCIUM GLUCONATE
     Indication: PRODUCT USED FOR UNKNOWN INDICATION
     Dosage: 7 BAGS UNDER THE BEDF01L FORMULA
     Route: 065
     Dates: start: 20200921, end: 20200927
  16. CALCIUM GLUCONATE. [Suspect]
     Active Substance: CALCIUM GLUCONATE
     Dosage: 1 BAG UNDER THE BEDF01LK FORMULA.
     Route: 065
     Dates: start: 20200921, end: 20200927
  17. PHYTOMENADIONE [Suspect]
     Active Substance: PHYTONADIONE
     Indication: PRODUCT USED FOR UNKNOWN INDICATION
     Dosage: 7 BAGS UNDER THE BEDF01L FORMULA
     Route: 065
     Dates: start: 20200921, end: 20200927
  18. MAGNESIUM SULFATE. [Suspect]
     Active Substance: MAGNESIUM SULFATE
     Indication: PRODUCT USED FOR UNKNOWN INDICATION
     Dosage: 7 BAGS UNDER THE BEDF01L FORMULA
     Route: 065
     Dates: start: 20200921, end: 20200927
  19. SODIUM LACTATE. [Suspect]
     Active Substance: SODIUM LACTATE
     Dosage: 1 BAG UNDER THE BEDF01LK FORMULA.
     Route: 065
     Dates: start: 20200921, end: 20200927
  20. AMINO ACIDS NOS [Suspect]
     Active Substance: AMINO ACIDS, SOURCE UNSPECIFIED
     Indication: PRODUCT USED FOR UNKNOWN INDICATION
     Dosage: 1 BAG UNDER THE BEDF01LK FORMULA.
     Route: 065
     Dates: start: 20200921, end: 20200927
  21. MAGNESIUM SULFATE. [Suspect]
     Active Substance: MAGNESIUM SULFATE
     Dosage: 1 BAG UNDER THE BEDF01LK FORMULA.
     Route: 065
     Dates: start: 20200921, end: 20200927
  22. GLUCOSE 1-PHOSPHATE DISODIUM [Suspect]
     Active Substance: .ALPHA.-GLUCOSE-1-PHOSPHATE
     Indication: PRODUCT USED FOR UNKNOWN INDICATION
     Dosage: 1 BAG UNDER THE BEDF01LK FORMULA.
     Route: 065
     Dates: start: 20200921, end: 20200927

REACTIONS (1)
  - General physical health deterioration [Unknown]

NARRATIVE: CASE EVENT DATE: 202009
